FAERS Safety Report 6312008-X (Version None)
Quarter: 2009Q3

REPORT INFORMATION
  Report Type: 
  Country: None (occurrence: None)
  Receive Date: 20090817
  Receipt Date: 20090805
  Transmission Date: 20100115
  Serious: Yes (Other)
  Sender: FDA-Public Use
  Company Number: PHEH2009US08809

PATIENT
  Sex: Male

DRUGS (1)
  1. GENTEAL GEL (NVO) [Suspect]

REACTIONS (3)
  - DRY EYE [None]
  - GLAUCOMA [None]
  - VISUAL IMPAIRMENT [None]
